FAERS Safety Report 11337987 (Version 1)
Quarter: 2015Q3

REPORT INFORMATION
  Report Type: Spontaneous
  Country: US (occurrence: US)
  Receive Date: 20150803
  Receipt Date: 20150803
  Transmission Date: 20151125
  Serious: Yes (Hospitalization, Disabling, Other)
  Sender: FDA-Public Use
  Company Number: US-ELI_LILLY_AND_COMPANY-US200911005492

PATIENT
  Age: 35 Year
  Sex: Male
  Weight: 72.11 kg

DRUGS (2)
  1. ZYPREXA [Suspect]
     Active Substance: OLANZAPINE
     Dosage: 1 D/F, UNK
     Dates: start: 199910, end: 200805
  2. RISPERDAL [Concomitant]
     Active Substance: RISPERIDONE
     Dates: start: 2008, end: 2009

REACTIONS (5)
  - Diabetes mellitus [Not Recovered/Not Resolved]
  - Obesity [Unknown]
  - Diabetic coma [Unknown]
  - Weight increased [Not Recovered/Not Resolved]
  - Hyperglycaemia [Unknown]

NARRATIVE: CASE EVENT DATE: 200811
